FAERS Safety Report 21293069 (Version 2)
Quarter: 2022Q3

REPORT INFORMATION
  Report Type: Spontaneous
  Country: US (occurrence: US)
  Receive Date: 20220905
  Receipt Date: 20220913
  Transmission Date: 20221027
  Serious: Yes (Hospitalization, Other)
  Sender: FDA-Public Use
  Company Number: US-SAMSUNG BIOEPIS-SB-2022-22044

PATIENT
  Age: 78 Year
  Sex: Male

DRUGS (4)
  1. INFLIXIMAB [Suspect]
     Active Substance: INFLIXIMAB
     Indication: Colitis ulcerative
     Dosage: UNKNOWN
     Route: 042
  2. VORICONAZOLE [Suspect]
     Active Substance: VORICONAZOLE
     Indication: Bronchopulmonary aspergillosis
     Dosage: UNKNOWN
     Route: 042
  3. PREDNISONE [Concomitant]
     Active Substance: PREDNISONE
     Indication: Colitis ulcerative
     Dosage: UNKNOWN, TAPER REGIMEN
     Route: 048
  4. METHYLPREDNISOLONE [Concomitant]
     Active Substance: METHYLPREDNISOLONE
     Indication: Colitis ulcerative
     Dosage: UNKNOWN
     Route: 042

REACTIONS (2)
  - Bronchopulmonary aspergillosis [Recovering/Resolving]
  - Drug-induced liver injury [Unknown]
